FAERS Safety Report 11624111 (Version 1)
Quarter: 2015Q4

REPORT INFORMATION
  Report Type: Spontaneous
  Country: US (occurrence: US)
  Receive Date: 20151013
  Receipt Date: 20151013
  Transmission Date: 20160304
  Serious: No
  Sender: FDA-Public Use
  Company Number: US-JNJFOC-20150914244

PATIENT
  Age: 69 Year
  Sex: Female
  Weight: 90.27 kg

DRUGS (13)
  1. GABAPENTIN. [Concomitant]
     Active Substance: GABAPENTIN
     Indication: NERVE INJURY
     Dosage: 2 PER DAY
     Route: 065
  2. BIOTIN [Concomitant]
     Active Substance: BIOTIN
     Indication: HAIR GROWTH ABNORMAL
     Dosage: 1 PER DAY
     Route: 065
     Dates: start: 201501
  3. WOMENS ROGAINE [Suspect]
     Active Substance: MINOXIDIL
     Route: 061
  4. VITAMIN D3 [Concomitant]
     Active Substance: CHOLECALCIFEROL
     Indication: PRODUCT USED FOR UNKNOWN INDICATION
     Dosage: 1 PILL PER DAY
     Route: 065
  5. IRON [Concomitant]
     Active Substance: IRON
     Indication: GASTRIC OPERATION
     Dosage: 1 TAB PER DAY
     Route: 065
  6. PRAVASTATIN [Concomitant]
     Active Substance: PRAVASTATIN\PRAVASTATIN SODIUM
     Indication: BLOOD CHOLESTEROL
     Dosage: 1 PER DAY, 4 YEARS
     Route: 065
  7. OXYBUTIN [Concomitant]
     Active Substance: OXYBUTYNIN
     Indication: RENAL DISORDER
     Dosage: 1 PER DAY
     Route: 065
  8. METFORMIN [Concomitant]
     Active Substance: METFORMIN HYDROCHLORIDE
     Indication: DIABETES MELLITUS
     Dosage: 2 PER DAY
     Route: 065
  9. WOMENS ROGAINE [Suspect]
     Active Substance: MINOXIDIL
     Indication: ALOPECIA
     Dosage: ABOUT A SQUIRT ON A PLATE 1/2 CAPFUL
     Route: 061
     Dates: start: 20150515
  10. FLAXSEED [Concomitant]
     Active Substance: FLAX SEED
     Indication: CARDIAC DISORDER
     Dosage: 4 TAB PER DAY, SINCE 20 YEARS AGO
     Route: 065
  11. SYNTHROID [Concomitant]
     Active Substance: LEVOTHYROXINE SODIUM
     Indication: THYROID DISORDER
     Dosage: 1 PILL PER DAY
     Route: 065
     Dates: start: 1988
  12. MULTIVITAMIN TABLET [Concomitant]
     Indication: GASTRIC OPERATION
     Dosage: 3 TABS PER DAY
     Route: 065
  13. TRIAMTERINE/HYDROCHLOROTHIAZIDE [Concomitant]
     Indication: DIURETIC THERAPY
     Route: 065

REACTIONS (3)
  - Hair colour changes [Not Recovered/Not Resolved]
  - Product use issue [Unknown]
  - Hair disorder [Not Recovered/Not Resolved]
